FAERS Safety Report 8701837 (Version 2)
Quarter: 2012Q4

REPORT INFORMATION
  Report Type: 
  Country: US (occurrence: US)
  Receive Date: 20120803
  Receipt Date: 20121227
  Transmission Date: 20130627
  Serious: Yes (Hospitalization)
  Sender: FDA-Public Use
  Company Number: US-BAYER-2012-075824

PATIENT
  Age: 36 Year
  Sex: Female
  Weight: 104 kg

DRUGS (11)
  1. OCELLA [Suspect]
     Indication: MENSTRUAL CYCLE MANAGEMENT
     Dosage: UNK
     Dates: start: 201202
  2. OCELLA [Suspect]
     Indication: PREMENSTRUAL SYNDROME
  3. LACTOBACILLUS ACIDOPHILUS [Concomitant]
     Indication: BOWEL MOVEMENT IRREGULARITY
     Dosage: UNK
     Dates: start: 2009
  4. LACTOBACILLUS ACIDOPHILUS [Concomitant]
     Indication: YEAST INFECTION
  5. PRILOSEC [Concomitant]
     Indication: ACID REFLUX (OESOPHAGEAL)
     Dosage: 5 mg, QD
     Dates: start: 2011
  6. IBUPROFEN [Concomitant]
  7. COLACE [Concomitant]
  8. BENADRYL [Concomitant]
  9. TYLENOL [Concomitant]
  10. LEVAQUIN [Concomitant]
  11. PERCOCET [Concomitant]

REACTIONS (11)
  - Pulmonary embolism [None]
  - Pulmonary infarction [None]
  - Pain [None]
  - General physical health deterioration [None]
  - Injury [None]
  - Anxiety [None]
  - Emotional distress [None]
  - Pain [None]
  - Anxiety [None]
  - Depression [None]
  - Off label use [None]
